FAERS Safety Report 9559316 (Version 3)
Quarter: 2013Q4

REPORT INFORMATION
  Report Type: Spontaneous
  Country: IE (occurrence: IE)
  Receive Date: 20130927
  Receipt Date: 20131007
  Transmission Date: 20140711
  Serious: Yes (Hospitalization)
  Sender: FDA-Public Use
  Company Number: PHFR2013IE003852

PATIENT
  Age: 32 Year
  Sex: Female

DRUGS (4)
  1. CLOZARIL [Suspect]
     Indication: SCHIZOPHRENIA
     Dosage: UNK
     Dates: start: 20040617
  2. CLOZARIL [Suspect]
     Dosage: 300 MG, UNK
     Route: 048
  3. CLOZARIL [Suspect]
     Dosage: UNK
  4. VENLAFAXINE [Concomitant]
     Indication: DEPRESSION
     Dosage: 225 MG, UNK
     Route: 048

REACTIONS (4)
  - Malaise [Unknown]
  - White blood cell count increased [Recovered/Resolved]
  - Neutrophil count increased [Recovered/Resolved]
  - Schizophrenia [Not Recovered/Not Resolved]
